FAERS Safety Report 21165436 (Version 2)
Quarter: 2024Q2

REPORT INFORMATION
  Report Type: Report from Study
  Country: PT (occurrence: PT)
  Receive Date: 20220803
  Receipt Date: 20240405
  Transmission Date: 20240716
  Serious: Yes (Other)
  Sender: FDA-Public Use
  Company Number: None

PATIENT
  Age: 85 Year
  Sex: Male
  Weight: 65 kg

DRUGS (12)
  1. VELTASSA [Suspect]
     Active Substance: PATIROMER
     Indication: Hyperkalaemia
     Route: 048
     Dates: start: 20211223, end: 20220420
  2. FUROSEMIDE [Concomitant]
     Active Substance: FUROSEMIDE
  3. BISOPROLOL [Concomitant]
     Active Substance: BISOPROLOL\BISOPROLOL FUMARATE
  4. ROSUVASTATIN [Concomitant]
     Active Substance: ROSUVASTATIN
  5. ENTRESTO [Concomitant]
     Active Substance: SACUBITRIL\VALSARTAN
     Dosage: 97 MG + 103 MG
  6. ASPIRIN [Concomitant]
     Active Substance: ASPIRIN
  7. DAPAGLIFLOZIN [Concomitant]
     Active Substance: DAPAGLIFLOZIN
  8. LINAGLIPTIN [Concomitant]
     Active Substance: LINAGLIPTIN
  9. TAMSULOSIN HYDROCHLORIDE [Concomitant]
     Active Substance: TAMSULOSIN HYDROCHLORIDE
  10. SPIRONOLACTONE [Concomitant]
     Active Substance: SPIRONOLACTONE
  11. FINASTERIDE [Concomitant]
     Active Substance: FINASTERIDE
  12. ANORO ELLIPTA [Concomitant]
     Active Substance: UMECLIDINIUM BROMIDE\VILANTEROL TRIFENATATE
     Dosage: 55 G + 22 G

REACTIONS (9)
  - Renal impairment [Recovered/Resolved]
  - Metabolic acidosis [Recovered/Resolved]
  - Chronic kidney disease [Unknown]
  - Chronic kidney disease [Recovered/Resolved]
  - Metabolic acidosis [Unknown]
  - Metabolic acidosis [Unknown]
  - Acidosis [Unknown]
  - Diarrhoea [Recovered/Resolved]
  - Diarrhoea [Unknown]

NARRATIVE: CASE EVENT DATE: 20220125
